FAERS Safety Report 8213445-9 (Version None)
Quarter: 2012Q1

REPORT INFORMATION
  Report Type: 
  Country: None (occurrence: None)
  Receive Date: 20120315
  Receipt Date: 20120309
  Transmission Date: 20120608
  Serious: Yes (Death, Hospitalization)
  Sender: FDA-Public Use
  Company Number: DE-ROCHE-693726

PATIENT
  Sex: Female
  Weight: 67.8 kg

DRUGS (3)
  1. AVASTIN [Suspect]
     Indication: BREAST CANCER
     Dosage: THIRD CYCLE FROM 11-JAN-2010 - 08-MAR-2010.
     Route: 042
     Dates: start: 20100111, end: 20100308
  2. ZOMETA [Concomitant]
     Indication: BREAST CANCER
     Route: 042
  3. PACLITAXEL [Suspect]
     Indication: BREAST CANCER
     Dosage: THIRD CYCLE FROM 11-JAN-2010 - 15-MAR-2010.
     Route: 042
     Dates: start: 20100111, end: 20100315

REACTIONS (1)
  - PANCYTOPENIA [None]
